FAERS Safety Report 9882783 (Version 1)
Quarter: 2014Q1

REPORT INFORMATION
  Report Type: Spontaneous
  Country: DE (occurrence: DE)
  Receive Date: 20140207
  Receipt Date: 20140207
  Transmission Date: 20141002
  Serious: Yes (Hospitalization)
  Sender: FDA-Public Use
  Company Number: GXKR2014DE000783

PATIENT
  Age: 80 Year
  Sex: Male
  Weight: 59 kg

DRUGS (5)
  1. RISPERIDON ? 1 A PHARMA [Suspect]
     Dosage: 0-0-0.5
  2. L-THYROXIN [Concomitant]
     Indication: HYPOTHYROIDISM
     Dosage: DAILY DOSE: 75 ?G MICROGRAM(S) EVERY DAYS
  3. PANTOPRAZOL CT [Concomitant]
     Indication: REFLUX GASTRITIS
     Dosage: DAILY DOSE: 40 MG MILLGRAM(S) EVERY DAYS
  4. RAMIPRIL - CT [Concomitant]
     Dates: start: 20131126
  5. TORASEMID VON CT [Concomitant]
     Dates: start: 20131126

REACTIONS (3)
  - Drug-induced liver injury [Recovering/Resolving]
  - Jaundice [Recovering/Resolving]
  - General physical health deterioration [Recovering/Resolving]
